FAERS Safety Report 15599938 (Version 1)
Quarter: 2018Q4

REPORT INFORMATION
  Report Type: Report from Study
  Country: None (occurrence: RO)
  Receive Date: 20181108
  Receipt Date: 20181108
  Transmission Date: 20190205
  Serious: Yes (Other)
  Sender: FDA-Public Use
  Company Number: RO-ABBVIE-18K-135-2478507-00

PATIENT
  Sex: Male

DRUGS (6)
  1. OLIVE OIL [Concomitant]
     Active Substance: OLIVE OIL
     Indication: PRODUCT USED FOR UNKNOWN INDICATION
     Dosage: AS NEEDED
  2. ESSENTIALE FORTE N [Concomitant]
     Indication: PRODUCT USED FOR UNKNOWN INDICATION
     Dosage: AS NEEDED
  3. HUMIRA [Suspect]
     Active Substance: ADALIMUMAB
     Indication: PSORIATIC ARTHROPATHY
     Route: 058
     Dates: start: 20110115
  4. SPIRULINA [Concomitant]
     Active Substance: SPIRULINA
     Indication: TYPE 2 DIABETES MELLITUS
  5. HUMIRA [Suspect]
     Active Substance: ADALIMUMAB
     Route: 058
  6. SPIRULINA [Concomitant]
     Active Substance: SPIRULINA
     Indication: BLOOD GLUCOSE INCREASED
     Route: 048

REACTIONS (8)
  - Inappropriate schedule of product administration [Unknown]
  - Pruritus [Recovered/Resolved]
  - Dysgeusia [Not Recovered/Not Resolved]
  - Inflammation [Unknown]
  - Psoriasis [Not Recovered/Not Resolved]
  - Road traffic accident [Unknown]
  - Abdominal hernia [Unknown]
  - Pain in extremity [Not Recovered/Not Resolved]

NARRATIVE: CASE EVENT DATE: 2018
